FAERS Safety Report 7508663-9 (Version None)
Quarter: 2011Q2

REPORT INFORMATION
  Report Type: 
  Country: None (occurrence: None)
  Receive Date: 20110527
  Receipt Date: 20100506
  Transmission Date: 20111010
  Serious: No
  Sender: FDA-Public Use
  Company Number: A0858558A

PATIENT
  Age: 52 Year
  Sex: Female

DRUGS (4)
  1. GABAPENTIN [Concomitant]
  2. VENTOLIN [Suspect]
     Dosage: 2PUFF FOUR TIMES PER DAY
     Route: 055
     Dates: start: 20090901
  3. ATROVENT [Concomitant]
  4. PREDNISONE [Concomitant]

REACTIONS (2)
  - CHEST DISCOMFORT [None]
  - PRODUCT QUALITY ISSUE [None]
